FAERS Safety Report 5484889-3 (Version None)
Quarter: 2007Q4

REPORT INFORMATION
  Report Type: 
  Country: None (occurrence: None)
  Receive Date: 20071010
  Receipt Date: 20070924
  Transmission Date: 20080405
  Serious: Yes (Hospitalization)
  Sender: FDA-Public Use
  Company Number: DSA_29715_2007

PATIENT
  Age: 57 Year
  Sex: Male

DRUGS (2)
  1. MONO-TILDIEM [Suspect]
     Indication: DRUG USE FOR UNKNOWN INDICATION
     Dosage: ORAL
     Route: 048
     Dates: start: 20060801, end: 20070131
  2. COAPROVEL   (COAPROVEL - IRBESARTAN WITH HYDROCHLOROTHIAZIDE) [Suspect]
     Indication: HYPERTENSION
     Dosage: (DF ORAL)
     Route: 048
     Dates: start: 20060801, end: 20070131

REACTIONS (3)
  - ASTHENIA [None]
  - INTERMITTENT CLAUDICATION [None]
  - MYALGIA [None]
